FAERS Safety Report 7606871-X (Version None)
Quarter: 2011Q3

REPORT INFORMATION
  Report Type: 
  Country: None (occurrence: None)
  Receive Date: 20110713
  Receipt Date: 20110708
  Transmission Date: 20111222
  Serious: Yes (Death, Hospitalization)
  Sender: FDA-Public Use
  Company Number: AE-GLAXOSMITHKLINE-B0715854A

PATIENT
  Age: 70 Year
  Sex: Female

DRUGS (4)
  1. ARIXTRA [Suspect]
     Indication: THROMBOSIS PROPHYLAXIS
     Dosage: 2.5MG PER DAY
     Route: 058
     Dates: start: 20110401, end: 20110409
  2. ACETAMINOPHEN [Concomitant]
  3. OMEPRAZOLE [Concomitant]
  4. ANTIBIOTIC [Concomitant]
     Indication: PROPHYLAXIS

REACTIONS (2)
  - PULMONARY EMBOLISM [None]
  - PRODUCT QUALITY ISSUE [None]
